FAERS Safety Report 5523123-2 (Version None)
Quarter: 2007Q4

REPORT INFORMATION
  Report Type: 
  Country: None (occurrence: None)
  Receive Date: 20071121
  Receipt Date: 20071119
  Transmission Date: 20080405
  Serious: Yes (Death)
  Sender: FDA-Public Use
  Company Number: US-ASTRAZENECA-2007UW26683

PATIENT
  Age: 35 Year
  Sex: Female

DRUGS (6)
  1. SEROQUEL [Suspect]
     Route: 048
  2. CYMBALTA [Concomitant]
  3. GEODON [Concomitant]
  4. WELLBUTRIN XL [Concomitant]
  5. LAMICTAL [Concomitant]
  6. PROVIGIL [Concomitant]
     Dosage: 100-200 MG QAM, PRN

REACTIONS (3)
  - DEATH [None]
  - GRAND MAL CONVULSION [None]
  - RESPIRATORY ARREST [None]
